FAERS Safety Report 9693863 (Version 1)
Quarter: 2013Q4

REPORT INFORMATION
  Report Type: Spontaneous
  Country: AU (occurrence: None)
  Receive Date: 20131114
  Receipt Date: 20131114
  Transmission Date: 20140711
  Serious: Yes (Other)
  Sender: FDA-Public Use
  Company Number: ABR_01240_2013

PATIENT
  Age: 69 Year
  Sex: Female

DRUGS (9)
  1. ERYTHROMYCIN (ERYTHROMYCIN) [Suspect]
     Indication: PRODUCT USED FOR UNKNOWN INDICATION
     Dosage: (DF)
  2. ACETYLSALICYLIC ACID (ACETYLSALICYLIC ACID) [Suspect]
     Indication: PRODUCT USED FOR UNKNOWN INDICATION
     Dosage: (DF)
  3. CALCIUM CARBONATE [Concomitant]
  4. DOCUSATE SODIUM\SENNOSIDES [Concomitant]
  5. VITAMINS NOS [Concomitant]
  6. GLUCOSAMINE HYDROCHLORIDE [Concomitant]
  7. LACTULOS [Concomitant]
  8. PANADEINE CO [Concomitant]
  9. RAEPRAZOLE SODIUM [Concomitant]

REACTIONS (2)
  - Amnesia [None]
  - Liver function test abnormal [None]
